FAERS Safety Report 25171132 (Version 4)
Quarter: 2025Q3

REPORT INFORMATION
  Report Type: Spontaneous
  Country: JP (occurrence: JP)
  Receive Date: 20250408
  Receipt Date: 20250922
  Transmission Date: 20251021
  Serious: Yes (Hospitalization)
  Sender: MERCK SHARP & DOHME LLC
  Company Number: JP-009507513-2270762

PATIENT
  Age: 85 Year
  Sex: Female
  Weight: 41.5 kg

DRUGS (7)
  1. KEYTRUDA [Suspect]
     Active Substance: PEMBROLIZUMAB
     Indication: Uterine cancer
     Route: 041
     Dates: start: 20240312, end: 20241021
  2. MINODRONIC ACID Tablets [Concomitant]
     Route: 048
  3. THYRADIN-S TABLETS [Concomitant]
     Route: 048
  4. BIO-THREE OD Tablets [Concomitant]
     Route: 048
  5. ELDECALCITOL Capsules [Concomitant]
     Route: 048
  6. Methycobal Tablets [Concomitant]
     Route: 048
  7. LENVATINIB [Suspect]
     Active Substance: LENVATINIB
     Indication: Uterine cancer
     Route: 048
     Dates: start: 20240312, end: 20241025

REACTIONS (3)
  - Adrenocorticotropic hormone deficiency [Recovered/Resolved]
  - Decreased appetite [Unknown]
  - Immune-mediated adrenal insufficiency [Recovered/Resolved]

NARRATIVE: CASE EVENT DATE: 20241025
